APPROVED DRUG PRODUCT: ATROPINE SULFATE
Active Ingredient: ATROPINE SULFATE
Strength: 0.4MG/ML (0.4MG/ML)
Dosage Form/Route: SOLUTION;INTRAVENOUS
Application: A216120 | Product #001 | TE Code: AP
Applicant: AMERICAN REGENT INC
Approved: May 26, 2022 | RLD: No | RS: Yes | Type: RX